FAERS Safety Report 7608678-6 (Version None)
Quarter: 2011Q3

REPORT INFORMATION
  Report Type: 
  Country: None (occurrence: None)
  Receive Date: 20110713
  Receipt Date: 20110713
  Transmission Date: 20111222
  Serious: Yes (Other)
  Sender: FDA-Public Use
  Company Number: None

PATIENT
  Age: 37 Year
  Sex: Female
  Weight: 58.0604 kg

DRUGS (1)
  1. KEFLEX [Suspect]
     Indication: CYST
     Dates: start: 20060801, end: 20060801

REACTIONS (8)
  - DECREASED APPETITE [None]
  - ELECTROLYTE IMBALANCE [None]
  - SLEEP TERROR [None]
  - DEPRESSED MOOD [None]
  - DEPRESSION [None]
  - INSOMNIA [None]
  - ANXIETY [None]
  - SUICIDAL IDEATION [None]
